FAERS Safety Report 6132248-2 (Version None)
Quarter: 2009Q1

REPORT INFORMATION
  Report Type: 
  Country: None (occurrence: None)
  Receive Date: 20090325
  Receipt Date: 20090314
  Transmission Date: 20090719
  Serious: Yes (Hospitalization)
  Sender: FDA-Public Use
  Company Number: US-PFIZER INC-2006048139

PATIENT
  Sex: Female
  Weight: 61.905 kg

DRUGS (7)
  1. BLINDED *PLACEBO [Suspect]
     Indication: HIV INFECTION
     Dosage: UNK
     Route: 048
     Dates: start: 20051111, end: 20060329
  2. BLINDED MARAVIROC [Suspect]
     Indication: HIV INFECTION
     Dosage: UNK
     Route: 048
     Dates: start: 20051111, end: 20060329
  3. FLUCONAZOLE [Concomitant]
     Indication: CANDIDIASIS
     Route: 048
     Dates: start: 19951101
  4. PAXIL CR [Concomitant]
     Route: 048
     Dates: start: 19970401
  5. KLONOPIN [Concomitant]
     Route: 048
     Dates: start: 19970401
  6. BACTRIM [Concomitant]
     Indication: ANTIFUNGAL PROPHYLAXIS
     Route: 048
     Dates: start: 20051201
  7. COLACE [Concomitant]
     Indication: CONSTIPATION
     Route: 048
     Dates: start: 20060106

REACTIONS (1)
  - CHOLELITHIASIS [None]
